FAERS Safety Report 13391950 (Version 1)
Quarter: 2017Q1

REPORT INFORMATION
  Report Type: Spontaneous
  Country: FR (occurrence: FR)
  Receive Date: 20170331
  Receipt Date: 20170331
  Transmission Date: 20170429
  Serious: Yes (Death, Hospitalization, Other)
  Sender: FDA-Public Use
  Company Number: FR-BRISTOL-MYERS SQUIBB COMPANY-BMS-2017-025692

PATIENT
  Age: 77 Year
  Sex: Female

DRUGS (8)
  1. COVERAM [Concomitant]
     Active Substance: AMLODIPINE\PERINDOPRIL
     Indication: PRODUCT USED FOR UNKNOWN INDICATION
     Dosage: 1 DF, QD
     Route: 065
     Dates: start: 201505, end: 20170225
  2. PLAVIX [Concomitant]
     Active Substance: CLOPIDOGREL BISULFATE
     Indication: PRODUCT USED FOR UNKNOWN INDICATION
     Dosage: 1 DF, QD
     Route: 048
     Dates: start: 201504, end: 20170225
  3. HYPERIUM [Concomitant]
     Active Substance: RILMENIDINE PHOSPHATE
     Indication: PRODUCT USED FOR UNKNOWN INDICATION
     Dosage: UNK
     Route: 065
     Dates: start: 201504
  4. GLUCOPHAGE XR [Suspect]
     Active Substance: METFORMIN HYDROCHLORIDE
     Indication: TYPE 2 DIABETES MELLITUS
     Dosage: 100 MG, TID
     Route: 048
     Dates: start: 201604, end: 20170225
  5. EUPRESSYL                          /00631801/ [Suspect]
     Active Substance: URAPIDIL
     Indication: HYPERTENSION
     Dosage: 30 MG, TID
     Route: 048
     Dates: start: 20170216, end: 20170225
  6. RABEPRAZOLE SODIUM. [Concomitant]
     Active Substance: RABEPRAZOLE SODIUM
     Indication: PRODUCT USED FOR UNKNOWN INDICATION
     Dosage: UNK
     Route: 048
     Dates: start: 201504, end: 20170225
  7. BYDUREON [Concomitant]
     Active Substance: EXENATIDE
     Indication: PRODUCT USED FOR UNKNOWN INDICATION
     Dosage: 1 DF, QWK
     Route: 058
     Dates: start: 201604, end: 20170225
  8. NOVONORM [Concomitant]
     Active Substance: REPAGLINIDE
     Indication: PRODUCT USED FOR UNKNOWN INDICATION
     Dosage: 4 MG, TID
     Route: 048
     Dates: start: 201504, end: 20170225

REACTIONS (6)
  - Acute kidney injury [Unknown]
  - Lactic acidosis [Fatal]
  - Coronary artery stenosis [Unknown]
  - Dialysis [Unknown]
  - Urinary tract infection [Unknown]
  - Hypoglycaemia [Unknown]

NARRATIVE: CASE EVENT DATE: 20170225
